FAERS Safety Report 18999643 (Version 3)
Quarter: 2021Q4

REPORT INFORMATION
  Report Type: Spontaneous
  Country: JP (occurrence: JP)
  Receive Date: 20210312
  Receipt Date: 20211018
  Transmission Date: 20220303
  Serious: Yes (Hospitalization, Other)
  Sender: FDA-Public Use
  Company Number: JP-SA-2021SA078336

PATIENT
  Age: 73 Year
  Sex: Male

DRUGS (1)
  1. DUPIXENT [Suspect]
     Active Substance: DUPILUMAB
     Indication: Chronic eosinophilic rhinosinusitis
     Dosage: UNK
     Route: 058
     Dates: start: 20210113, end: 202103

REACTIONS (13)
  - Diverticulum intestinal haemorrhagic [Unknown]
  - Melaena [Unknown]
  - Shock [Unknown]
  - Haematochezia [Recovered/Resolved]
  - White blood cell count increased [Not Recovered/Not Resolved]
  - Nasal congestion [Unknown]
  - Condition aggravated [Unknown]
  - Dyspnoea [Unknown]
  - Dizziness [Unknown]
  - Restrictive pulmonary disease [Unknown]
  - Condition aggravated [Unknown]
  - Eosinophil count increased [Not Recovered/Not Resolved]
  - Conjunctivitis [Recovered/Resolved]

NARRATIVE: CASE EVENT DATE: 20210101
